FAERS Safety Report 6793424-9 (Version None)
Quarter: 2010Q2

REPORT INFORMATION
  Report Type: 
  Country: None (occurrence: None)
  Receive Date: 20100624
  Receipt Date: 20100323
  Transmission Date: 20101027
  Serious: Yes (Death)
  Sender: FDA-Public Use
  Company Number: US-MYLANLABS-2010S1003177

PATIENT
  Age: 58 Year
  Sex: Female

DRUGS (7)
  1. CLOZAPINE [Suspect]
     Indication: SCHIZOAFFECTIVE DISORDER
     Route: 048
     Dates: start: 20080724, end: 20100101
  2. KLONOPIN [Concomitant]
  3. HALDOL [Concomitant]
  4. DILANTIN [Concomitant]
  5. LITHIUM [Concomitant]
  6. TOPAMAX [Concomitant]
  7. COGENTIN [Concomitant]

REACTIONS (1)
  - DEATH [None]
